FAERS Safety Report 9228859 (Version 1)
Quarter: 2013Q2

REPORT INFORMATION
  Report Type: Spontaneous
  Country: IN (occurrence: IN)
  Receive Date: 20130412
  Receipt Date: 20130412
  Transmission Date: 20140414
  Serious: Yes (Death, Hospitalization)
  Sender: FDA-Public Use
  Company Number: PHHY2013IN035756

PATIENT
  Sex: Male

DRUGS (2)
  1. SEBIVO [Suspect]
     Indication: CHRONIC HEPATITIS B
     Dosage: 600 MG, DAILY
     Route: 048
     Dates: start: 20121226, end: 20130314
  2. TAVEN [Concomitant]
     Indication: CHRONIC HEPATITIS B
     Dosage: 300 MG, DAILY
     Route: 048
     Dates: start: 20121226, end: 20130314

REACTIONS (4)
  - Death [Fatal]
  - Hepatocellular carcinoma [Unknown]
  - Oedema [Unknown]
  - Asthenia [Unknown]
